FAERS Safety Report 23555653 (Version 1)
Quarter: 2024Q1

REPORT INFORMATION
  Report Type: Spontaneous
  Country: PT (occurrence: PT)
  Receive Date: 20240222
  Receipt Date: 20240222
  Transmission Date: 20240410
  Serious: Yes (Hospitalization)
  Sender: FDA-Public Use
  Company Number: PT-GESTAFARMP-2023-00800

PATIENT
  Age: 16 Year
  Sex: Male

DRUGS (3)
  1. AMBROXOL [Suspect]
     Active Substance: AMBROXOL
     Indication: Upper respiratory tract infection
     Route: 065
  2. ACETAMINOPHEN [Suspect]
     Active Substance: ACETAMINOPHEN
     Indication: Upper respiratory tract infection
     Route: 065
  3. PHENYLEPHRINE [Concomitant]
     Active Substance: PHENYLEPHRINE HYDROCHLORIDE
     Indication: Upper respiratory tract infection
     Route: 045

REACTIONS (1)
  - Pityriasis rubra pilaris [Recovering/Resolving]
